FAERS Safety Report 6112303-3 (Version None)
Quarter: 2009Q1

REPORT INFORMATION
  Report Type: 
  Country: None (occurrence: None)
  Receive Date: 20090311
  Receipt Date: 20090311
  Transmission Date: 20090719
  Serious: Yes (Life-Threatening, Hospitalization, Disabling, Other)
  Sender: FDA-Public Use
  Company Number: None

PATIENT
  Sex: Female
  Weight: 68.0396 kg

DRUGS (5)
  1. BONIVA [Suspect]
     Indication: BONE DISORDER
     Dosage: 20/40 3 MONTH OVER YEAR
  2. BONIVA [Suspect]
     Dosage: IN VAIN 1 SHOT
  3. PROTONIX [Concomitant]
  4. ZESTRIL [Concomitant]
  5. CLINDAMYCIN HCL [Concomitant]

REACTIONS (7)
  - CONVULSION [None]
  - DRUG INEFFECTIVE [None]
  - FAECES DISCOLOURED [None]
  - MALAISE [None]
  - PNEUMONIA [None]
  - RETROPERITONEAL HAEMORRHAGE [None]
  - SWELLING [None]
